FAERS Safety Report 8950540 (Version 2)
Quarter: 2012Q4

REPORT INFORMATION
  Report Type: Report from Study
  Country: AU (occurrence: AU)
  Receive Date: 20121207
  Receipt Date: 20121218
  Transmission Date: 20130627
  Serious: Yes (Other)
  Sender: FDA-Public Use
  Company Number: AU-JNJFOC-20121202485

PATIENT
  Sex: Male

DRUGS (3)
  1. SIMPONI [Suspect]
     Indication: ANKYLOSING SPONDYLITIS
     Route: 065
     Dates: start: 20121004
  2. SIMPONI [Suspect]
     Indication: ANKYLOSING SPONDYLITIS
     Route: 065
     Dates: start: 20120904
  3. SIMPONI [Suspect]
     Indication: ANKYLOSING SPONDYLITIS
     Route: 065
     Dates: start: 20121104, end: 20121104

REACTIONS (1)
  - Pulmonary tuberculosis [Unknown]
